FAERS Safety Report 9348268 (Version 1)
Quarter: 2013Q2

REPORT INFORMATION
  Report Type: Spontaneous
  Country: US (occurrence: None)
  Receive Date: 20130612
  Receipt Date: 20130612
  Transmission Date: 20140414
  Serious: Yes (Other)
  Sender: FDA-Public Use
  Company Number: None

PATIENT
  Age: 11 Year
  Sex: Female
  Weight: 98.1 kg

DRUGS (1)
  1. LAMICTAL [Suspect]
     Dosage: SINCE BEFORE 2011-PRESENT
     Route: 048

REACTIONS (4)
  - Convulsion [None]
  - Therapeutic response unexpected with drug substitution [None]
  - Product substitution issue [None]
  - Condition aggravated [None]
